FAERS Safety Report 22052822 (Version 1)
Quarter: 2023Q1

REPORT INFORMATION
  Report Type: Spontaneous
  Country: FR (occurrence: FR)
  Receive Date: 20230302
  Receipt Date: 20230302
  Transmission Date: 20230418
  Serious: Yes (Hospitalization)
  Sender: FDA-Public Use
  Company Number: FR-AFSSAPS-RN2023000192

PATIENT
  Age: 19 Year
  Sex: Male

DRUGS (1)
  1. CLOZAPINE [Suspect]
     Active Substance: CLOZAPINE
     Indication: Schizophrenia
     Dosage: UNK,(50 MG/DAY FOR 3 DAYS (06 TO 09/12/2022), THEN 100 MG/DAY UNTIL 12/12/2022 THEN CLOZAPINE 150 MG
     Route: 048
     Dates: start: 20221206

REACTIONS (4)
  - Disturbance in attention [Recovering/Resolving]
  - General physical health deterioration [Recovering/Resolving]
  - Troponin I increased [Recovering/Resolving]
  - Overdose [Recovering/Resolving]

NARRATIVE: CASE EVENT DATE: 20230123
